FAERS Safety Report 7020736-6 (Version None)
Quarter: 2010Q3

REPORT INFORMATION
  Report Type: 
  Country: None (occurrence: None)
  Receive Date: 20100929
  Receipt Date: 20100920
  Transmission Date: 20110219
  Serious: Yes (Other)
  Sender: FDA-Public Use
  Company Number: GB-SANOFI-AVENTIS-2010SA057138

PATIENT
  Age: 18 Year
  Sex: Male

DRUGS (1)
  1. LANTUS [Suspect]
     Route: 058
     Dates: start: 20100920

REACTIONS (3)
  - INJECTION SITE REACTION [None]
  - INTENTIONAL OVERDOSE [None]
  - OVERDOSE [None]
